FAERS Safety Report 8067805-X (Version None)
Quarter: 2012Q1

REPORT INFORMATION
  Report Type: 
  Country: None (occurrence: None)
  Receive Date: 20120124
  Receipt Date: 20120118
  Transmission Date: 20120608
  Serious: Yes (Hospitalization, Other)
  Sender: FDA-Public Use
  Company Number: PHHY2011DE099678

PATIENT
  Sex: Male
  Weight: 67 kg

DRUGS (19)
  1. MIRTAZAPINE [Concomitant]
     Dosage: 15 MG, PER DAY
     Route: 048
     Dates: start: 20110228
  2. ACETYLSALICYLIC ACID SRT [Concomitant]
     Dosage: 100 MG, PER DAY
     Route: 048
     Dates: start: 20030305
  3. UNAT [Concomitant]
     Dosage: 5 MG, PER DAY
     Route: 048
     Dates: start: 20101014, end: 20110114
  4. HYDROCHLOROTHIAZIDE [Suspect]
     Dosage: 12.5 MG, PER DAY
     Route: 048
     Dates: start: 20110115
  5. CARVEDILOL [Suspect]
     Dosage: 12.5 MG, PER DAY
     Route: 048
     Dates: start: 20110115
  6. TORSEMIDE [Concomitant]
     Dosage: 10 MG, PER DAY
     Route: 048
     Dates: start: 20110117
  7. FLUVASTATIN SODIUM [Suspect]
     Dosage: 40 MG, PER DAY
     Route: 048
     Dates: start: 20040609
  8. AMLODIPINE [Concomitant]
     Dosage: 5 MG, PER DAY
     Route: 048
     Dates: start: 20110228
  9. AMLODIPINE [Concomitant]
     Dosage: UNK
     Dates: start: 20110714
  10. PHYSIOTENS [Concomitant]
     Dosage: 0.2 MG, PER DAY
     Route: 048
     Dates: start: 20101014
  11. CARVEDILOL [Suspect]
     Dosage: 6.25 MG
     Route: 048
  12. PHYSIOTENS [Concomitant]
     Dosage: 0.4 MG, PER DAY
     Route: 048
     Dates: start: 20100119
  13. TORSEMIDE [Concomitant]
     Dosage: 15 MG, PER DAY
     Route: 048
     Dates: start: 20110115, end: 20110116
  14. LEVOTHYROXINE SODIUM [Concomitant]
     Dosage: 100 UG, PER DAY
     Route: 048
     Dates: start: 20110228
  15. ATACAND [Concomitant]
     Dosage: 32 MG, PER DAY
     Route: 048
     Dates: start: 20110115
  16. AMLODIPINE [Concomitant]
     Dosage: 10 MG, PER DAY
     Route: 048
     Dates: start: 20080819, end: 20110227
  17. LEVOTHYROXINE SODIUM [Concomitant]
     Dosage: 125 UG, PER DAY
     Route: 048
     Dates: start: 20070801, end: 20110227
  18. CARVEDILOL [Suspect]
     Indication: HYPERTENSION
     Dosage: 25 MG, PER DAY
     Route: 048
     Dates: start: 20080819, end: 20110114
  19. ATACAND [Concomitant]
     Dosage: 16 MG, PER DAY
     Route: 048
     Dates: start: 20100820, end: 20110114

REACTIONS (6)
  - CARDIAC FAILURE [None]
  - PNEUMONIA [None]
  - DEHYDRATION [None]
  - BLOOD PRESSURE INCREASED [None]
  - HYPONATRAEMIA [None]
  - BLOOD PRESSURE DECREASED [None]
